FAERS Safety Report 9691521 (Version 2)
Quarter: 2013Q4

REPORT INFORMATION
  Report Type: Report from Study
  Country: US (occurrence: US)
  Receive Date: 20131115
  Receipt Date: 20131127
  Transmission Date: 20140711
  Serious: Yes (Hospitalization)
  Sender: FDA-Public Use
  Company Number: US-ABBVIE-13P-163-1167303-00

PATIENT
  Sex: Female
  Weight: 68.1 kg

DRUGS (8)
  1. HUMIRA [Suspect]
     Indication: PRODUCT USED FOR UNKNOWN INDICATION
     Dates: start: 2010, end: 2010
  2. HUMIRA [Suspect]
     Dates: start: 2010, end: 2010
  3. HUMIRA [Suspect]
     Dates: start: 2010
  4. AZATHIOPRINE [Suspect]
     Indication: CROHN^S DISEASE
  5. METHOTREXATE [Concomitant]
     Indication: CROHN^S DISEASE
  6. FOLIC ACID [Concomitant]
     Indication: VITAMIN SUPPLEMENTATION
  7. TOPAMAX [Concomitant]
     Indication: MIGRAINE
  8. PLAQUENIL [Concomitant]
     Indication: CROHN^S DISEASE

REACTIONS (10)
  - Crohn^s disease [Not Recovered/Not Resolved]
  - Large intestinal stenosis [Recovered/Resolved]
  - Abdominal adhesions [Recovered/Resolved]
  - Pneumonia [Not Recovered/Not Resolved]
  - Joint swelling [Not Recovered/Not Resolved]
  - Asthenia [Not Recovered/Not Resolved]
  - Arthritis [Not Recovered/Not Resolved]
  - Feeling cold [Not Recovered/Not Resolved]
  - Vomiting [Not Recovered/Not Resolved]
  - Pain [Not Recovered/Not Resolved]
